FAERS Safety Report 7637545-7 (Version None)
Quarter: 2011Q3

REPORT INFORMATION
  Report Type: 
  Country: None (occurrence: None)
  Receive Date: 20110726
  Receipt Date: 20110720
  Transmission Date: 20111222
  Serious: No
  Sender: FDA-Public Use
  Company Number: US-PFIZER INC-2011164843

PATIENT
  Sex: Female

DRUGS (4)
  1. ADVIL [Suspect]
     Indication: ARTHRITIS
  2. ADVIL [Suspect]
     Indication: ANALGESIC THERAPY
     Dosage: 200 MG, UNK
     Route: 048
  3. TRIAMTERENE AND HYDROCHLOROTHIAZIDE [Concomitant]
     Indication: JOINT SWELLING
     Dosage: 37.5/25 MG, DAILY
  4. ADVIL [Suspect]
     Indication: TENDONITIS

REACTIONS (5)
  - PRURITUS [None]
  - SWELLING [None]
  - BURNING SENSATION [None]
  - RASH [None]
  - ERYTHEMA [None]
